FAERS Safety Report 5008489-4 (Version None)
Quarter: 2006Q2

REPORT INFORMATION
  Report Type: 
  Country: None (occurrence: None)
  Receive Date: 20060522
  Receipt Date: 20060522
  Transmission Date: 20061013
  Serious: Yes (Other)
  Sender: FDA-Public Use
  Company Number: None

PATIENT
  Age: 58 Year
  Sex: Female
  Weight: 77.1115 kg

DRUGS (2)
  1. BYETTA [Suspect]
     Indication: DIABETES MELLITUS
     Dosage: 10MCG   TWICE DAILY  SQ;  SQ
     Route: 058
     Dates: start: 20060201
  2. BYETTA [Suspect]
     Indication: DIABETES MELLITUS
     Dosage: 10MCG   TWICE DAILY  SQ;  SQ
     Route: 058
     Dates: start: 20060401

REACTIONS (1)
  - PANCREATITIS ACUTE [None]
